FAERS Safety Report 25099308 (Version 1)
Quarter: 2025Q1

REPORT INFORMATION
  Report Type: Spontaneous
  Country: US (occurrence: US)
  Receive Date: 20250320
  Receipt Date: 20250320
  Transmission Date: 20250408
  Serious: No
  Sender: SANOFI AVENTIS
  Company Number: US-SA-2025SA080894

PATIENT
  Age: 71 Year
  Sex: Male

DRUGS (6)
  1. KEVZARA [Suspect]
     Active Substance: SARILUMAB
     Indication: Seasonal allergy
     Dosage: 200 MG, QOW
     Route: 058
     Dates: start: 20250218
  2. ROSUVASTATIN [Concomitant]
     Active Substance: ROSUVASTATIN
  3. ASPIRIN [Concomitant]
     Active Substance: ASPIRIN
  4. FIASP [Concomitant]
     Active Substance: INSULIN ASPART
  5. LEVOTHYROXINE [Concomitant]
     Active Substance: LEVOTHYROXINE
  6. PREDNISONE [Concomitant]
     Active Substance: PREDNISONE

REACTIONS (3)
  - Scratch [Not Recovered/Not Resolved]
  - Nasopharyngitis [Not Recovered/Not Resolved]
  - Product use in unapproved indication [Unknown]

NARRATIVE: CASE EVENT DATE: 20250101
